FAERS Safety Report 5424195-6 (Version None)
Quarter: 2007Q3

REPORT INFORMATION
  Report Type: 
  Country: None (occurrence: None)
  Receive Date: 20070731
  Receipt Date: 20070504
  Transmission Date: 20080115
  Serious: No
  Sender: FDA-Public Use
  Company Number: US200705007384

PATIENT
  Age: 68 Year
  Sex: Male
  Weight: 147.8 kg

DRUGS (9)
  1. BYETTA [Suspect]
     Indication: DIABETES MELLITUS
     Dosage: 5 U/G, 2/D, SUBCUTANEOUS : 10 UG, 2/D, SUBCUTANEOUS : 5 UG/ 2/D, SUBCUTANEOUS
     Route: 058
     Dates: start: 20060401, end: 20060601
  2. BYETTA [Suspect]
     Indication: DIABETES MELLITUS
     Dosage: 5 U/G, 2/D, SUBCUTANEOUS : 10 UG, 2/D, SUBCUTANEOUS : 5 UG/ 2/D, SUBCUTANEOUS
     Route: 058
     Dates: start: 20060601, end: 20061101
  3. BYETTA [Suspect]
     Indication: DIABETES MELLITUS
     Dosage: 5 U/G, 2/D, SUBCUTANEOUS : 10 UG, 2/D, SUBCUTANEOUS : 5 UG/ 2/D, SUBCUTANEOUS
     Route: 058
     Dates: start: 20070421
  4. EXENATIDE PEN, DISPOSABLE DEVCIE (EXENATIDE PEN) [Concomitant]
  5. LANTUS [Concomitant]
  6. METFORMIN HCL [Concomitant]
  7. GLYBURIDE [Concomitant]
  8. ACTOS [Concomitant]
  9. NEXIUM [Concomitant]

REACTIONS (5)
  - ANOREXIA [None]
  - NAUSEA [None]
  - VOMITING [None]
  - WEIGHT DECREASED [None]
  - WEIGHT INCREASED [None]
